FAERS Safety Report 4998956-1 (Version None)
Quarter: 2006Q2

REPORT INFORMATION
  Report Type: 
  Country: None (occurrence: None)
  Receive Date: 20060510
  Receipt Date: 20060131
  Transmission Date: 20061013
  Serious: Yes (Hospitalization)
  Sender: FDA-Public Use
  Company Number: US-MERCK-0602USA00102

PATIENT
  Age: 47 Year
  Sex: Male
  Weight: 114 kg

DRUGS (5)
  1. VIOXX [Suspect]
     Indication: PAIN
     Route: 048
     Dates: start: 20020301, end: 20030101
  2. VIOXX [Suspect]
     Indication: EXOSTOSIS
     Route: 048
     Dates: start: 20020301, end: 20030101
  3. ACETAMINOPHEN AND HYDROCODONE BITARTRATE [Concomitant]
     Route: 065
  4. TYLENOL [Concomitant]
     Route: 065
  5. METAMUCIL [Concomitant]
     Indication: HAEMORRHOIDS
     Route: 065

REACTIONS (8)
  - ABDOMINAL DISTENSION [None]
  - BACK PAIN [None]
  - DEEP VEIN THROMBOSIS [None]
  - DYSPEPSIA [None]
  - NAUSEA [None]
  - POST THROMBOTIC SYNDROME [None]
  - SHOULDER PAIN [None]
  - TENDON INJURY [None]
